FAERS Safety Report 4821773-X (Version None)
Quarter: 2005Q4

REPORT INFORMATION
  Report Type: 
  Country: None (occurrence: None)
  Receive Date: 20051107
  Receipt Date: 20051024
  Transmission Date: 20060501
  Serious: Yes (Hospitalization)
  Sender: FDA-Public Use
  Company Number: SE-AMGEN-UK155321

PATIENT
  Sex: Male

DRUGS (1)
  1. CINACALCET [Suspect]
     Indication: HYPERPARATHYROIDISM SECONDARY
     Route: 048
     Dates: start: 20051012

REACTIONS (3)
  - ANGINA UNSTABLE [None]
  - MYOCARDIAL ISCHAEMIA [None]
  - VENTRICULAR EXTRASYSTOLES [None]
